FAERS Safety Report 16371691 (Version 2)
Quarter: 2019Q2

REPORT INFORMATION
  Report Type: Spontaneous
  Country: US (occurrence: US)
  Receive Date: 20190530
  Receipt Date: 20190624
  Transmission Date: 20190711
  Serious: Yes (Other)
  Sender: FDA-Public Use
  Company Number: US-GLAXOSMITHKLINE-US2019092954

PATIENT
  Age: 33 Year
  Sex: Female

DRUGS (2)
  1. 4 WAY FAST ACTING [Suspect]
     Active Substance: PHENYLEPHRINE HYDROCHLORIDE
     Dosage: 2 SPRAY, UNK
  2. 4 WAY FAST ACTING [Suspect]
     Active Substance: PHENYLEPHRINE HYDROCHLORIDE
     Indication: NASOPHARYNGITIS
     Dosage: 2 SPRAY, UNK
     Dates: start: 2017

REACTIONS (5)
  - Drug dependence [Unknown]
  - Product storage error [Unknown]
  - Product complaint [Unknown]
  - Nasal injury [Unknown]
  - Intentional product use issue [Unknown]
